FAERS Safety Report 22092845 (Version 1)
Quarter: 2023Q1

REPORT INFORMATION
  Report Type: Spontaneous
  Country: DE (occurrence: None)
  Receive Date: 20230314
  Receipt Date: 20230314
  Transmission Date: 20230418
  Serious: Yes (Other)
  Sender: FDA-Public Use
  Company Number: DE-ROCHE-3305433

PATIENT
  Sex: Female

DRUGS (1)
  1. KADCYLA [Suspect]
     Active Substance: ADO-TRASTUZUMAB EMTANSINE
     Indication: Breast cancer
     Dosage: TWICE
     Route: 065

REACTIONS (10)
  - General physical health deterioration [Unknown]
  - Pyrexia [Unknown]
  - Aspartate aminotransferase increased [Unknown]
  - Blood lactate dehydrogenase increased [Unknown]
  - Thrombocytopenia [Recovered/Resolved]
  - Gallbladder enlargement [Unknown]
  - Cholecystitis [Unknown]
  - Hypertransaminasaemia [Unknown]
  - Infection [Unknown]
  - Toxicity to various agents [Unknown]
